FAERS Safety Report 20587315 (Version 2)
Quarter: 2022Q2

REPORT INFORMATION
  Report Type: Report from Study
  Country: US (occurrence: US)
  Receive Date: 20220314
  Receipt Date: 20220406
  Transmission Date: 20220721
  Serious: Yes (Hospitalization)
  Sender: FDA-Public Use
  Company Number: US-JNJFOC-20220312724

PATIENT
  Age: 58 Year
  Sex: Female

DRUGS (1)
  1. MACITENTAN [Suspect]
     Active Substance: MACITENTAN
     Indication: Pulmonary arterial hypertension
     Route: 048
     Dates: start: 202202

REACTIONS (13)
  - Anaemia [Not Recovered/Not Resolved]
  - Swelling [Not Recovered/Not Resolved]
  - Headache [Recovering/Resolving]
  - Dizziness [Recovering/Resolving]
  - Tinnitus [Recovering/Resolving]
  - Renal function test abnormal [Recovering/Resolving]
  - Blood potassium increased [Recovering/Resolving]
  - Dyspnoea [Recovering/Resolving]
  - Tremor [Not Recovered/Not Resolved]
  - Ear pain [Unknown]
  - Infection [Unknown]
  - Blood glucose increased [Unknown]
  - Hospitalisation [Unknown]

NARRATIVE: CASE EVENT DATE: 20220217
